FAERS Safety Report 18034194 (Version 2)
Quarter: 2020Q3

REPORT INFORMATION
  Report Type: Spontaneous
  Country: US (occurrence: US)
  Receive Date: 20200716
  Receipt Date: 20200717
  Transmission Date: 20201103
  Serious: No
  Sender: FDA-Public Use
  Company Number: US-BAYER-2020-140979

PATIENT
  Age: 86 Year
  Sex: Female

DRUGS (1)
  1. CLIMARA [Suspect]
     Active Substance: ESTRADIOL
     Dosage: 1 DF, OW
     Route: 062

REACTIONS (5)
  - Migraine with aura [None]
  - Drug ineffective [None]
  - Product outer packaging issue [None]
  - Night sweats [None]
  - Product packaging quantity issue [None]

NARRATIVE: CASE EVENT DATE: 20200607
